FAERS Safety Report 9313465 (Version 1)
Quarter: 2013Q2

REPORT INFORMATION
  Report Type: Spontaneous
  Country: SK (occurrence: SK)
  Receive Date: 20130528
  Receipt Date: 20130528
  Transmission Date: 20140414
  Serious: Yes (Other)
  Sender: FDA-Public Use
  Company Number: PHHY2013SK051111

PATIENT
  Age: 62 Year
  Sex: Female

DRUGS (5)
  1. AMOKSIKLAV [Suspect]
     Indication: BRONCHITIS
     Dosage: 1 G, BID
     Route: 048
     Dates: start: 20130423, end: 20130430
  2. BETALOC ZOK [Concomitant]
  3. ATORIS [Concomitant]
  4. NORVASC [Concomitant]
  5. LEXAURIN [Concomitant]

REACTIONS (7)
  - Aphthous stomatitis [Unknown]
  - Fatigue [Unknown]
  - Abdominal pain upper [Unknown]
  - Epigastric discomfort [Unknown]
  - Dysgeusia [Unknown]
  - Oedema mouth [Unknown]
  - Drug hypersensitivity [Unknown]
